FAERS Safety Report 5580638-9 (Version None)
Quarter: 2008Q1

REPORT INFORMATION
  Report Type: 
  Country: None (occurrence: None)
  Receive Date: 20080103
  Receipt Date: 20071224
  Transmission Date: 20080703
  Serious: Yes (Hospitalization)
  Sender: FDA-Public Use
  Company Number: US-BAXTER-2007BH010077

PATIENT
  Age: 43 Year
  Sex: Male
  Weight: 79 kg

DRUGS (8)
  1. RECOMBINATE [Suspect]
     Indication: FACTOR VIII DEFICIENCY
     Route: 042
     Dates: start: 19870101
  2. UNSPECIFIED ^ABBOTT PRODUCT^ [Suspect]
     Indication: FACTOR VIII DEFICIENCY
     Dosage: DOSE UNIT:UNKNOWN
     Route: 065
     Dates: start: 19830101
  3. KEPPRA [Concomitant]
     Route: 048
  4. REYATAZ [Concomitant]
     Route: 048
  5. NORVIR [Concomitant]
     Route: 048
  6. TRUVADA [Concomitant]
     Dosage: DOSE UNIT:UNKNOWN
     Route: 048
  7. LEXAPRO [Concomitant]
     Route: 048
  8. COLERITE [Concomitant]
     Indication: PROPHYLAXIS
     Route: 048

REACTIONS (3)
  - APHASIA [None]
  - HEPATITIS C [None]
  - SUBDURAL HAEMATOMA [None]
